FAERS Safety Report 24280194 (Version 2)
Quarter: 2024Q3

REPORT INFORMATION
  Report Type: Report from Study
  Country: US (occurrence: US)
  Receive Date: 20240904
  Receipt Date: 20240911
  Transmission Date: 20241017
  Serious: Yes (Hospitalization)
  Sender: ABBVIE
  Company Number: US-ABBVIE-5894376

PATIENT
  Age: 82 Year
  Sex: Male

DRUGS (4)
  1. VENCLEXTA [Suspect]
     Active Substance: VENETOCLAX
     Indication: Acute myeloid leukaemia
     Route: 048
     Dates: start: 20210609
  2. VENCLEXTA [Suspect]
     Active Substance: VENETOCLAX
     Indication: Acute myeloid leukaemia
     Dosage: 100 MG  FORM STRENGTH
     Route: 048
     Dates: start: 202312
  3. NUBEQA [Concomitant]
     Active Substance: DAROLUTAMIDE
     Indication: Acute myeloid leukaemia
     Dates: start: 20231216
  4. ORGOVYX [Concomitant]
     Active Substance: RELUGOLIX
     Indication: Acute myeloid leukaemia
     Dates: start: 20240214

REACTIONS (4)
  - Hip fracture [Unknown]
  - Fall [Unknown]
  - Nausea [Unknown]
  - Dizziness [Unknown]

NARRATIVE: CASE EVENT DATE: 20240801
